FAERS Safety Report 14243934 (Version 4)
Quarter: 2018Q2

REPORT INFORMATION
  Report Type: Spontaneous
  Country: PL (occurrence: PL)
  Receive Date: 20171201
  Receipt Date: 20180523
  Transmission Date: 20180711
  Serious: Yes (Other)
  Sender: FDA-Public Use
  Company Number: PL-PFIZER INC-2017511478

PATIENT
  Age: 83 Year
  Sex: Male

DRUGS (8)
  1. CARDURA XL [Suspect]
     Active Substance: DOXAZOSIN MESYLATE
     Indication: PROSTATIC DISORDER
     Dosage: 4 MG, ONCE DAILY (FOR THE NIGHT)
  2. DIURESIN [Concomitant]
     Active Substance: INDAPAMIDE
     Dosage: UNK
  3. POTAZEK [Concomitant]
     Dosage: UNK
  4. MILURIT [Concomitant]
     Active Substance: ALLOPURINOL
     Dosage: UNK
  5. SUVARDIO [Concomitant]
     Active Substance: ROSUVASTATIN CALCIUM
     Dosage: UNK
  6. ACARD [Concomitant]
     Active Substance: ASPIRIN
     Indication: CARDIAC DISORDER
     Dosage: UNK
  7. DIVASCAN [Concomitant]
     Indication: HYPERTENSION
     Dosage: UNK
  8. DEBRETIN [Concomitant]
     Indication: GASTROINTESTINAL DISORDER
     Dosage: UNK

REACTIONS (2)
  - Cataract [Unknown]
  - Pruritus [Unknown]
